FAERS Safety Report 7978841-3 (Version None)
Quarter: 2011Q4

REPORT INFORMATION
  Report Type: 
  Country: None (occurrence: None)
  Receive Date: 20111214
  Receipt Date: 20111202
  Transmission Date: 20120403
  Serious: Yes (Death, Other)
  Sender: FDA-Public Use
  Company Number: US-BAXTER-2011BH002188

PATIENT
  Age: 95 Year
  Sex: Female

DRUGS (18)
  1. HEPARIN SODIUM 5,000 UNITS IN DEXTROSE 5% [Suspect]
     Route: 042
     Dates: start: 20080118, end: 20080119
  2. HEPARIN SODIUM INJECTION [Suspect]
     Route: 058
     Dates: start: 20080116, end: 20080116
  3. HEPARIN SODIUM INJECTION [Suspect]
     Route: 058
     Dates: start: 20080117, end: 20080117
  4. HEPARIN SODIUM INJECTION [Suspect]
     Route: 042
     Dates: start: 20080118, end: 20080120
  5. DETROL [Concomitant]
     Indication: PRODUCT USED FOR UNKNOWN INDICATION
     Route: 065
  6. ZETIA [Concomitant]
     Indication: PRODUCT USED FOR UNKNOWN INDICATION
     Route: 065
  7. HYDROXYZINE [Concomitant]
     Indication: PRODUCT USED FOR UNKNOWN INDICATION
     Route: 065
  8. IBANDRONATE SODIUM [Concomitant]
     Indication: PRODUCT USED FOR UNKNOWN INDICATION
     Route: 065
  9. HEPARIN SODIUM INJECTION [Suspect]
     Route: 042
     Dates: start: 20080117, end: 20080117
  10. METAMUCIL-2 [Concomitant]
     Indication: PRODUCT USED FOR UNKNOWN INDICATION
     Route: 065
  11. BACTRIM [Concomitant]
     Indication: PRODUCT USED FOR UNKNOWN INDICATION
     Route: 065
  12. HEPARIN SODIUM 5,000 UNITS IN DEXTROSE 5% [Suspect]
     Indication: PRODUCT USED FOR UNKNOWN INDICATION
     Route: 042
     Dates: start: 20080117, end: 20080118
  13. CALCIUM WITH VITAMIN D [Concomitant]
     Indication: PRODUCT USED FOR UNKNOWN INDICATION
     Route: 065
  14. HEPARIN SODIUM INJECTION [Suspect]
     Indication: INTRAVENOUS CATHETER MANAGEMENT
     Route: 042
     Dates: start: 20080116, end: 20080121
  15. NADOLOL [Concomitant]
     Indication: PRODUCT USED FOR UNKNOWN INDICATION
     Route: 065
  16. HEPARIN SODIUM 5,000 UNITS IN DEXTROSE 5% [Suspect]
  17. BONIL [Concomitant]
     Indication: PRODUCT USED FOR UNKNOWN INDICATION
     Route: 065
  18. DAILY MULTIVITAMIN [Concomitant]
     Indication: PRODUCT USED FOR UNKNOWN INDICATION
     Route: 065

REACTIONS (9)
  - FATIGUE [None]
  - ATRIAL FIBRILLATION [None]
  - PNEUMONIA [None]
  - CORONARY ARTERY DISEASE [None]
  - POLIOMYELITIS [None]
  - ABDOMINAL PAIN [None]
  - DECREASED APPETITE [None]
  - CARDIAC ARREST [None]
  - BLOOD PRESSURE DECREASED [None]
